FAERS Safety Report 21965772 (Version 2)
Quarter: 2023Q1

REPORT INFORMATION
  Report Type: Report from Study
  Country: AE (occurrence: AE)
  Receive Date: 20230208
  Receipt Date: 20230304
  Transmission Date: 20230418
  Serious: Yes (Death, Hospitalization)
  Sender: FDA-Public Use
  Company Number: AE-002147023-NVSC2023AE027879

PATIENT
  Age: 71 Year
  Sex: Male

DRUGS (1)
  1. ENTRESTO [Suspect]
     Active Substance: SACUBITRIL\VALSARTAN
     Indication: Cardiac failure
     Dosage: 200 MG, BID
     Route: 048
     Dates: start: 20210908

REACTIONS (5)
  - Cerebral haemorrhage [Fatal]
  - Subdural haematoma [Unknown]
  - Brain oedema [Unknown]
  - Congestive cardiomyopathy [Unknown]
  - Fall [Unknown]
